FAERS Safety Report 24784761 (Version 1)
Quarter: 2024Q4

REPORT INFORMATION
  Report Type: Spontaneous
  Country: US (occurrence: US)
  Receive Date: 20241228
  Receipt Date: 20241228
  Transmission Date: 20250115
  Serious: No
  Sender: Haleon PLC
  Company Number: US-HALEON-2218499

PATIENT

DRUGS (1)
  1. SENSODYNE PRONAMEL [Suspect]
     Active Substance: POTASSIUM NITRATE\SODIUM FLUORIDE
     Indication: Hyperaesthesia teeth

REACTIONS (1)
  - Therapeutic product effect decreased [Unknown]
